FAERS Safety Report 7258433-4 (Version None)
Quarter: 2011Q1

REPORT INFORMATION
  Report Type: 
  Country: None (occurrence: None)
  Receive Date: 20110129
  Receipt Date: 20100831
  Transmission Date: 20110831
  Serious: No
  Sender: FDA-Public Use
  Company Number: US-ABBOTT-10P-163-0668805-00

PATIENT
  Sex: Male
  Weight: 86.26 kg

DRUGS (3)
  1. INDOMETHACIN [Concomitant]
     Indication: PRODUCT USED FOR UNKNOWN INDICATION
  2. HUMIRA [Suspect]
     Indication: JOINT SWELLING
  3. HYDROCODONE WATSON BRAND [Concomitant]
     Indication: PRODUCT USED FOR UNKNOWN INDICATION

REACTIONS (2)
  - DEVICE MALFUNCTION [None]
  - INJECTION SITE PAIN [None]
